FAERS Safety Report 16779718 (Version 1)
Quarter: 2019Q3

REPORT INFORMATION
  Report Type: Spontaneous
  Country: US (occurrence: US)
  Receive Date: 20190717
  Receipt Date: 20190717
  Transmission Date: 20191005
  Serious: No
  Sender: FDA-Public Use
  Company Number: None

PATIENT
  Age: 43 Year
  Sex: Female

DRUGS (1)
  1. GLATIRAMER 40MG  PFS INJ  (12/BOX) [Suspect]
     Active Substance: GLATIRAMER
     Dates: start: 2018, end: 2019

REACTIONS (2)
  - Nuclear magnetic resonance imaging abnormal [None]
  - Disease progression [None]

NARRATIVE: CASE EVENT DATE: 20190717
